FAERS Safety Report 17247147 (Version 7)
Quarter: 2020Q3

REPORT INFORMATION
  Report Type: Spontaneous
  Country: US (occurrence: US)
  Receive Date: 20200108
  Receipt Date: 20200923
  Transmission Date: 20201102
  Serious: No
  Sender: FDA-Public Use
  Company Number: US-PFIZER INC-2020007046

PATIENT
  Age: 59 Year
  Sex: Female

DRUGS (4)
  1. RASUVO [Concomitant]
     Active Substance: METHOTREXATE SODIUM
     Dosage: UNK
  2. METHOTREXATE. [Concomitant]
     Active Substance: METHOTREXATE
     Dosage: UNK
  3. PREDNISONE. [Concomitant]
     Active Substance: PREDNISONE
     Dosage: UNK
  4. XELJANZ XR [Suspect]
     Active Substance: TOFACITINIB CITRATE
     Indication: RHEUMATOID ARTHRITIS
     Dosage: 11 MG, 1X/DAY (TAKE 1 TABLET BY MOUTH ONCE DAILY)
     Route: 048
     Dates: start: 201909

REACTIONS (8)
  - Abdominal pain upper [Unknown]
  - Diarrhoea [Unknown]
  - Blood test abnormal [Recovered/Resolved]
  - Illness [Unknown]
  - Burning sensation [Recovered/Resolved]
  - Therapeutic product effect incomplete [Unknown]
  - Condition aggravated [Recovered/Resolved]
  - Influenza [Unknown]

NARRATIVE: CASE EVENT DATE: 20191226
